FAERS Safety Report 16732841 (Version 1)
Quarter: 2019Q3

REPORT INFORMATION
  Report Type: Spontaneous
  Country: US (occurrence: US)
  Receive Date: 20190823
  Receipt Date: 20190823
  Transmission Date: 20191005
  Serious: No
  Sender: FDA-Public Use
  Company Number: US-TEVA-2019-US-1097025

PATIENT
  Sex: Male

DRUGS (1)
  1. TESTOSTERONE GEL [Suspect]
     Active Substance: TESTOSTERONE
     Indication: BLOOD TESTOSTERONE DECREASED
     Route: 061
     Dates: start: 20190816

REACTIONS (3)
  - Headache [Unknown]
  - Pruritus [Unknown]
  - Mood altered [Unknown]

NARRATIVE: CASE EVENT DATE: 20190816
